FAERS Safety Report 9303840 (Version 1)
Quarter: 2013Q2

REPORT INFORMATION
  Report Type: Spontaneous
  Country: FR (occurrence: FR)
  Receive Date: 20130522
  Receipt Date: 20130522
  Transmission Date: 20140414
  Serious: Yes (Hospitalization, Other)
  Sender: FDA-Public Use
  Company Number: FR-ASTRAZENECA-2013SE34015

PATIENT
  Age: 74 Year
  Sex: Female

DRUGS (16)
  1. INEXIUM [Suspect]
     Route: 048
     Dates: end: 20130318
  2. MEROPENEM ANHYDRE [Suspect]
     Dates: start: 20130305, end: 20130318
  3. TRIATEC [Suspect]
     Route: 048
     Dates: start: 20130221, end: 20130313
  4. TRIATEC [Suspect]
     Route: 048
     Dates: start: 20130313
  5. PREVISCAN [Suspect]
     Route: 048
     Dates: start: 20130304, end: 20130318
  6. COLIMYCINE [Concomitant]
     Dates: start: 20130305
  7. NOVONORM [Concomitant]
     Dates: start: 20130312, end: 20130314
  8. LOVENOX [Concomitant]
     Route: 058
     Dates: end: 20130312
  9. LASILIX [Concomitant]
     Route: 048
     Dates: start: 20130221, end: 20130311
  10. EUPRESSYL [Concomitant]
     Route: 048
     Dates: end: 20130312
  11. JANUVIA [Concomitant]
     Route: 048
     Dates: start: 20130223, end: 20130312
  12. METFORMINE [Concomitant]
     Route: 048
     Dates: start: 20130223, end: 20130312
  13. CARDENSIEL [Concomitant]
  14. MOTILIUM [Concomitant]
  15. LEVOTHYROX [Concomitant]
  16. DIFFU K [Concomitant]

REACTIONS (8)
  - Haemolytic uraemic syndrome [Unknown]
  - Intervertebral discitis [Unknown]
  - Pseudomonas infection [Unknown]
  - Pancreatic mass [Unknown]
  - Drug reaction with eosinophilia and systemic symptoms [Unknown]
  - Eosinophilia [Recovered/Resolved]
  - Rash [Recovered/Resolved]
  - Pathogen resistance [None]
